FAERS Safety Report 4277220-2 (Version None)
Quarter: 2004Q1

REPORT INFORMATION
  Report Type: 
  Country: None (occurrence: None)
  Receive Date: 20040120
  Receipt Date: 20040108
  Transmission Date: 20041129
  Serious: Yes (Congenital Anomaly)
  Sender: FDA-Public Use
  Company Number: ZONI001293

PATIENT

DRUGS (1)
  1. EXCEGRAN (ZONISAMIDE) [Suspect]
     Indication: DRUG EXPOSURE DURING PREGNANCY
     Dosage: 200 MG DAILY TRANSPLACENTAL
     Route: 064
     Dates: start: 19920227, end: 20000602

REACTIONS (5)
  - COMPLICATIONS OF MATERNAL EXPOSURE TO THERAPEUTIC DRUGS [None]
  - CONGENITAL ATRIAL SEPTAL DEFECT [None]
  - CONVULSION [None]
  - MATERNAL DRUGS AFFECTING FOETUS [None]
  - PREGNANCY [None]
